FAERS Safety Report 7947242-6 (Version None)
Quarter: 2011Q4

REPORT INFORMATION
  Report Type: 
  Country: None (occurrence: None)
  Receive Date: 20111129
  Receipt Date: 20111123
  Transmission Date: 20120403
  Serious: Yes (Other)
  Sender: FDA-Public Use
  Company Number: US-BAYER-2011-114014

PATIENT

DRUGS (4)
  1. AVELOX [Suspect]
     Dosage: 400 MG, ONCE
     Route: 048
     Dates: start: 20101201
  2. SINGULAIR [Concomitant]
  3. ADVAIR DISKUS 100/50 [Concomitant]
  4. ALLEGRA [Concomitant]

REACTIONS (6)
  - ANAPHYLACTIC REACTION [None]
  - TREMOR [None]
  - RASH [None]
  - DYSPNOEA [None]
  - PRURITUS [None]
  - EYELID OEDEMA [None]
